FAERS Safety Report 9216620 (Version 1)
Quarter: 2013Q2

REPORT INFORMATION
  Report Type: Spontaneous
  Country: US (occurrence: US)
  Receive Date: 20130408
  Receipt Date: 20130412
  Transmission Date: 20140414
  Serious: Yes (Other)
  Sender: FDA-Public Use
  Company Number: US-BAYER-2013-043791

PATIENT
  Age: 61 Year
  Sex: Female
  Weight: 81.63 kg

DRUGS (1)
  1. ALKA-SELTZER PLUS COLD FORMULA NIGHT [Suspect]
     Indication: NASOPHARYNGITIS
     Dosage: 2 DF, ONCE
     Route: 048
     Dates: start: 201303, end: 201303

REACTIONS (3)
  - Swollen tongue [Recovered/Resolved]
  - Hypoaesthesia oral [Recovered/Resolved]
  - Pharyngeal oedema [Recovered/Resolved]
